FAERS Safety Report 13543997 (Version 1)
Quarter: 2017Q2

REPORT INFORMATION
  Report Type: Report from Study
  Country: HN (occurrence: HN)
  Receive Date: 20170515
  Receipt Date: 20170515
  Transmission Date: 20170830
  Serious: Yes (Death)
  Sender: FDA-Public Use
  Company Number: HN-ASTRAZENECA-2017SE49625

PATIENT
  Age: 66 Year
  Sex: Male

DRUGS (1)
  1. ATACAND PLUS [Suspect]
     Active Substance: CANDESARTAN CILEXETIL\HYDROCHLOROTHIAZIDE
     Route: 048
     Dates: start: 20160519

REACTIONS (1)
  - Death [Fatal]
